FAERS Safety Report 22980165 (Version 2)
Quarter: 2023Q4

REPORT INFORMATION
  Report Type: Spontaneous
  Country: FR (occurrence: FR)
  Receive Date: 20230925
  Receipt Date: 20231006
  Transmission Date: 20240110
  Serious: Yes (Hospitalization, Other)
  Sender: FDA-Public Use
  Company Number: FR-SANDOZ-SDZ2023FR013906

PATIENT
  Age: 59 Year
  Sex: Female

DRUGS (5)
  1. RISPERIDONE [Suspect]
     Active Substance: RISPERIDONE
     Indication: Product used for unknown indication
     Dosage: 2 MILLIGRAM DAILY; 2 MG, QD (IN 1 DAY)
  2. RISPERIDONE [Suspect]
     Active Substance: RISPERIDONE
     Dosage: UNK UNK, QD (2 TO 4 MG/DAY)
     Dates: start: 2021
  3. TRAMADOL [Suspect]
     Active Substance: TRAMADOL\TRAMADOL HYDROCHLORIDE
     Indication: Product used for unknown indication
     Dosage: 350 MILLIGRAM DAILY; 350 MG, QD
  4. BROMAZEPAM [Suspect]
     Active Substance: BROMAZEPAM
     Indication: Product used for unknown indication
     Dosage: 16 DOSAGE FORMS DAILY; 16 DF, QD (IN 1 DAY)
  5. BROMAZEPAM [Suspect]
     Active Substance: BROMAZEPAM
     Dosage: 3 DOSAGE FORMS DAILY; 3 DF, QD
     Dates: start: 1997

REACTIONS (3)
  - Extrapyramidal disorder [Recovering/Resolving]
  - Drug use disorder [Not Recovered/Not Resolved]
  - Incorrect product administration duration [Unknown]
